FAERS Safety Report 23401990 (Version 4)
Quarter: 2024Q2

REPORT INFORMATION
  Report Type: Spontaneous
  Country: US (occurrence: US)
  Receive Date: 20240115
  Receipt Date: 20240625
  Transmission Date: 20240715
  Serious: Yes (Other)
  Sender: FDA-Public Use
  Company Number: US-SA-SAC20240111000546

PATIENT
  Age: 14 Year
  Sex: Female

DRUGS (2)
  1. DUPIXENT [Suspect]
     Active Substance: DUPILUMAB
     Indication: Asthma
     Dosage: 600 MG, 1X
     Route: 058
     Dates: start: 20231218, end: 20231218
  2. DUPIXENT [Suspect]
     Active Substance: DUPILUMAB
     Dosage: 300 MG, QOW
     Route: 058
     Dates: start: 20240101, end: 202405

REACTIONS (7)
  - Type 1 diabetes mellitus [Recovered/Resolved]
  - Tremor [Recovered/Resolved]
  - Headache [Recovered/Resolved]
  - Pyrexia [Unknown]
  - Chills [Unknown]
  - Arthralgia [Unknown]
  - Drug ineffective [Unknown]

NARRATIVE: CASE EVENT DATE: 20240101
